FAERS Safety Report 11312071 (Version 2)
Quarter: 2015Q3

REPORT INFORMATION
  Report Type: Spontaneous
  Country: CN (occurrence: CN)
  Receive Date: 20150727
  Receipt Date: 20150820
  Transmission Date: 20151125
  Serious: Yes (Other)
  Sender: FDA-Public Use
  Company Number: CN-PFIZER INC-2015248417

PATIENT
  Age: 92 Year
  Sex: Male

DRUGS (7)
  1. MEDROL [Suspect]
     Active Substance: METHYLPREDNISOLONE
     Indication: PLATELET COUNT DECREASED
     Dosage: 7 TABLETS DAILY
     Route: 048
  2. SOLU-MEDROL [Suspect]
     Active Substance: METHYLPREDNISOLONE SODIUM SUCCINATE
     Indication: PLATELET COUNT DECREASED
     Dosage: 40 MG, DAILY
  3. MEDROL [Suspect]
     Active Substance: METHYLPREDNISOLONE
     Dosage: 4 MG, DAILY
     Route: 048
  4. MEDROL [Suspect]
     Active Substance: METHYLPREDNISOLONE
     Dosage: 2 TABLETS DAILY
     Route: 048
  5. MEDROL [Suspect]
     Active Substance: METHYLPREDNISOLONE
     Dosage: 4 TABLETS
     Route: 048
  6. MEDROL [Suspect]
     Active Substance: METHYLPREDNISOLONE
     Dosage: 1 TABLET
     Route: 048
  7. MEDROL [Suspect]
     Active Substance: METHYLPREDNISOLONE
     Dosage: 28 MG, DAILY
     Route: 048

REACTIONS (6)
  - Tachycardia [Unknown]
  - Muscular weakness [Unknown]
  - Oedema peripheral [Unknown]
  - Haemorrhage subcutaneous [Unknown]
  - Infection [Unknown]
  - Pyrexia [Unknown]
